FAERS Safety Report 23570758 (Version 2)
Quarter: 2024Q1

REPORT INFORMATION
  Report Type: Spontaneous
  Country: US (occurrence: US)
  Receive Date: 20240227
  Receipt Date: 20240315
  Transmission Date: 20240410
  Serious: Yes (Other)
  Sender: FDA-Public Use
  Company Number: US-VERICEL-US-VCEL-24-000058

PATIENT
  Age: 18 Year
  Sex: Male

DRUGS (1)
  1. MACI [Suspect]
     Active Substance: AUTOLOGOUS CULTURED CHONDROCYTES\SUS SCROFA COLLAGEN
     Indication: Osteochondral fracture
     Dosage: UNK
     Route: 050
     Dates: start: 20231102, end: 20231102

REACTIONS (3)
  - Application site joint infection [Unknown]
  - Staphylococcal infection [Unknown]
  - Cartilage injury [Unknown]

NARRATIVE: CASE EVENT DATE: 20231120
